FAERS Safety Report 7533576-6 (Version None)
Quarter: 2011Q2

REPORT INFORMATION
  Report Type: 
  Country: None (occurrence: None)
  Receive Date: 20110608
  Receipt Date: 20110526
  Transmission Date: 20111010
  Serious: Yes (Hospitalization)
  Sender: FDA-Public Use
  Company Number: JP-UCBSA-031810

PATIENT
  Sex: Female

DRUGS (22)
  1. CERTOLIZUMAB PEGOL [Suspect]
     Route: 058
     Dates: start: 20110414, end: 20110414
  2. LAFUTIDINE [Concomitant]
     Dates: start: 20041116
  3. AMBROXOL HYDROCHLORIDE [Concomitant]
     Dates: start: 20110407, end: 20110421
  4. CERTOLIZUMAB PEGOL [Suspect]
     Indication: RHEUMATOID ARTHRITIS
     Dosage: CDP870-41 STUDY, WEEKS 0,2,4
     Route: 058
     Dates: start: 20090928
  5. LANSOPRAZOLE [Concomitant]
     Dates: start: 20041116
  6. ISONIAZID [Concomitant]
     Dates: start: 20091112
  7. LEUCOVORIN CALCIUM [Concomitant]
     Dates: start: 20080808
  8. CARBOCISTEINE [Concomitant]
     Dates: start: 20110407, end: 20110421
  9. ROSUVASTATIN CALCIUM [Concomitant]
     Dates: start: 20101125
  10. KETOPROFEN [Concomitant]
     Dosage: ADEQUATE DOSE
     Dates: start: 20080107
  11. SODIUM RISEDRONATE HYDRATE [Concomitant]
     Dates: start: 20090427
  12. APRICOT KERNEL WATER [Concomitant]
     Dates: start: 20110407, end: 20110428
  13. CHERRYBARK EXTRACT_CODEINE PHOSPHATE [Concomitant]
     Dates: start: 20110407, end: 20110428
  14. CERTOLIZUMAB PEGOL [Suspect]
     Dosage: CDP870-41 STUDY,
     Route: 058
     Dates: end: 20100106
  15. CERTOLIZUMAB PEGOL [Suspect]
     Route: 058
     Dates: start: 20100120, end: 20110330
  16. LOXOPROFEN SODIUM [Concomitant]
     Dates: start: 20090202
  17. DICLOFENAC SODIUM [Concomitant]
     Dosage: ADEQUATE DOSE
     Dates: start: 20080107
  18. METHOTREXATE [Concomitant]
     Dates: start: 20080222
  19. CLARITHROMYCIN [Concomitant]
     Dates: start: 20110407, end: 20110421
  20. SIMPLE SYRUP [Concomitant]
     Dates: start: 20110407, end: 20110428
  21. RHEUMATREX [Suspect]
     Indication: RHEUMATOID ARTHRITIS
     Route: 048
     Dates: start: 20080222
  22. ETODOLAC [Concomitant]
     Dates: start: 20090901

REACTIONS (1)
  - BRONCHOPNEUMONIA [None]
